FAERS Safety Report 8358635-X (Version None)
Quarter: 2012Q2

REPORT INFORMATION
  Report Type: 
  Country: None (occurrence: None)
  Receive Date: 20120514
  Receipt Date: 20120505
  Transmission Date: 20120825
  Serious: Yes (Other)
  Sender: FDA-Public Use
  Company Number: RU-ROCHE-1064008

PATIENT
  Age: 47 Year
  Sex: Female

DRUGS (4)
  1. CARDIOMAGNYL [Concomitant]
  2. OMACOR [Concomitant]
  3. BONIVA [Suspect]
     Indication: OSTEOPOROSIS
     Route: 042
     Dates: start: 20120427
  4. ASPIRIN [Concomitant]

REACTIONS (8)
  - HEADACHE [None]
  - RED BLOOD CELL SEDIMENTATION RATE INCREASED [None]
  - HYPOAESTHESIA [None]
  - ABDOMINAL PAIN [None]
  - ALANINE AMINOTRANSFERASE INCREASED [None]
  - HYPERCOAGULATION [None]
  - BLOOD FIBRINOGEN INCREASED [None]
  - HYPERCHOLESTEROLAEMIA [None]
